FAERS Safety Report 9316302 (Version 1)
Quarter: 2013Q2

REPORT INFORMATION
  Report Type: Spontaneous
  Country: US (occurrence: None)
  Receive Date: 20130528
  Receipt Date: 20130528
  Transmission Date: 20140414
  Serious: Yes (Hospitalization)
  Sender: FDA-Public Use
  Company Number: None

PATIENT
  Age: 69 Year
  Sex: Male
  Weight: 93.1 kg

DRUGS (1)
  1. ALFA 2 INTERFERON 2B (INTRON-A) [Suspect]
     Dosage: 83.2 MILLIUNIT

REACTIONS (5)
  - Presyncope [None]
  - Fall [None]
  - Dehydration [None]
  - Blood pressure orthostatic [None]
  - Hypophagia [None]
